FAERS Safety Report 9838863 (Version 1)
Quarter: 2014Q1

REPORT INFORMATION
  Report Type: Spontaneous
  Country: US (occurrence: None)
  Receive Date: 20140117
  Receipt Date: 20140117
  Transmission Date: 20141002
  Serious: Yes (Other)
  Sender: FDA-Public Use
  Company Number: None

PATIENT
  Age: 77 Year
  Sex: Female
  Weight: 77.11 kg

DRUGS (1)
  1. METHOTREXATE 2.5MG/ML 0.8ML SQ WEEKLY [Suspect]
     Dosage: 0.8ML SQ WEEKLY?YEARS OF USE
     Route: 058

REACTIONS (1)
  - Squamous cell carcinoma of lung [None]
